FAERS Safety Report 20607384 (Version 1)
Quarter: 2022Q1

REPORT INFORMATION
  Report Type: Spontaneous
  Country: US (occurrence: None)
  Receive Date: 20220316
  Receipt Date: 20220316
  Transmission Date: 20220424
  Serious: Yes (Hospitalization)
  Sender: FDA-Public Use
  Company Number: None

PATIENT
  Age: 45 Year
  Sex: Female
  Weight: 77 kg

DRUGS (1)
  1. RENFLEXIS [Suspect]
     Active Substance: INFLIXIMAB-ABDA
     Indication: Crohn^s disease
     Dosage: FREQUENCY : ONCE;?
     Route: 041
     Dates: start: 20210617, end: 20220308

REACTIONS (4)
  - Infusion related reaction [None]
  - Flushing [None]
  - Blood pressure increased [None]
  - Acute myocardial infarction [None]

NARRATIVE: CASE EVENT DATE: 20220308
